FAERS Safety Report 9557921 (Version 1)
Quarter: 2013Q3

REPORT INFORMATION
  Report Type: Spontaneous
  Country: US (occurrence: None)
  Receive Date: 20130724
  Receipt Date: 20130724
  Transmission Date: 20140515
  Serious: No
  Sender: FDA-Public Use
  Company Number: PHEH2013US005048

PATIENT
  Age: 54 Year
  Sex: Female

DRUGS (6)
  1. GILENYA [Suspect]
     Indication: MULTIPLE SCLEROSIS
     Route: 048
     Dates: start: 20130227
  2. TOPAMAX (TOPIRAMATE) [Concomitant]
  3. AMPYRA (FAMPRIDINE) [Concomitant]
  4. SIMVASTATIN (SIMVASTATIN) [Concomitant]
  5. DETROL (TOLTERODINE L-TARTRATE) [Concomitant]
  6. PROZAC (FLUOXETINE HYDROCHLORIDE) [Concomitant]

REACTIONS (2)
  - Fall [None]
  - Headache [None]
